FAERS Safety Report 8201429-6 (Version None)
Quarter: 2012Q1

REPORT INFORMATION
  Report Type: 
  Country: None (occurrence: None)
  Receive Date: 20120307
  Receipt Date: 20120223
  Transmission Date: 20120608
  Serious: Yes (Other)
  Sender: FDA-Public Use
  Company Number: AUR-APL-2010-01522

PATIENT
  Age: 44 Year
  Sex: Male
  Weight: 78 kg

DRUGS (7)
  1. CLOPIDOGREL [Concomitant]
  2. ENALAPRIL MALEATE [Concomitant]
  3. ALPRAZOLAM [Concomitant]
  4. PAROXETINE HCL [Suspect]
     Indication: ANXIETY
  5. CHANTIX [Suspect]
     Indication: SMOKING CESSATION THERAPY
     Dosage: (1 MG, 12 HR), ORAL
     Route: 048
     Dates: start: 20091123, end: 20100217
  6. ATENOLOL [Concomitant]
  7. SIMVASTATIIN (SIMVASTATIN) [Concomitant]

REACTIONS (4)
  - PANIC ATTACK [None]
  - DRUG INTERACTION [None]
  - CONDITION AGGRAVATED [None]
  - ANXIETY [None]
